FAERS Safety Report 16909785 (Version 1)
Quarter: 2019Q4

REPORT INFORMATION
  Report Type: Spontaneous
  Country: MY (occurrence: MY)
  Receive Date: 20191011
  Receipt Date: 20191011
  Transmission Date: 20200122
  Serious: Yes (Other)
  Sender: FDA-Public Use
  Company Number: MY-ASTRAZENECA-2019SF43710

PATIENT
  Age: 20576 Day
  Sex: Male
  Weight: 49 kg

DRUGS (10)
  1. SYMBICORT [Suspect]
     Active Substance: BUDESONIDE\FORMOTEROL FUMARATE DIHYDRATE
     Dosage: 160/4.5 2 INHALATIONS BD
     Route: 055
     Dates: start: 201807
  2. MONTELUKAST [Concomitant]
     Active Substance: MONTELUKAST SODIUM
  3. SYMBICORT [Suspect]
     Active Substance: BUDESONIDE\FORMOTEROL FUMARATE DIHYDRATE
     Dosage: 160/4.5 3 INHALATIONS BD
     Route: 055
     Dates: start: 201708
  4. THEOPHYLLINE SR [Concomitant]
     Active Substance: THEOPHYLLINE ANHYDROUS
     Dosage: 150.0MG UNKNOWN
  5. SYMBICORT [Suspect]
     Active Substance: BUDESONIDE\FORMOTEROL FUMARATE DIHYDRATE
     Dosage: 160/4.5 2 INHALATIONS BD
     Route: 055
     Dates: start: 201112
  6. SYMBICORT [Suspect]
     Active Substance: BUDESONIDE\FORMOTEROL FUMARATE DIHYDRATE
     Dosage: 160/4.5 1 INHALATIONS BD/PRN
     Route: 055
     Dates: start: 201907
  7. THEOPHYLLINE SR [Concomitant]
     Active Substance: THEOPHYLLINE ANHYDROUS
     Dosage: 250.0MG UNKNOWN
  8. SYMBICORT [Suspect]
     Active Substance: BUDESONIDE\FORMOTEROL FUMARATE DIHYDRATE
     Dosage: 160/4.5 2 INHALATIONS BD
     Route: 055
     Dates: start: 201807
  9. SALBUTAMOL [Concomitant]
     Active Substance: ALBUTEROL
     Dosage: 2 PUFFS PRN
  10. SYMBICORT [Suspect]
     Active Substance: BUDESONIDE\FORMOTEROL FUMARATE DIHYDRATE
     Dosage: 160/4.5 3 INHALATIONS BD
     Route: 055
     Dates: start: 201305

REACTIONS (4)
  - Blood immunoglobulin E increased [Unknown]
  - Bronchiectasis [Unknown]
  - Asthma [Not Recovered/Not Resolved]
  - Nasal polyps [Unknown]

NARRATIVE: CASE EVENT DATE: 201203
